APPROVED DRUG PRODUCT: BETHANECHOL CHLORIDE
Active Ingredient: BETHANECHOL CHLORIDE
Strength: 10MG
Dosage Form/Route: TABLET;ORAL
Application: A040897 | Product #002
Applicant: SUN PHARMACEUTICAL INDUSTRIES INC
Approved: Apr 22, 2009 | RLD: No | RS: No | Type: DISCN